FAERS Safety Report 18962959 (Version 9)
Quarter: 2023Q1

REPORT INFORMATION
  Report Type: Report from Study
  Country: US (occurrence: US)
  Receive Date: 20210303
  Receipt Date: 20230331
  Transmission Date: 20230418
  Serious: Yes (Other)
  Sender: FDA-Public Use
  Company Number: US-TAKEDA-2021TUS013649

PATIENT
  Age: 64 Year
  Sex: Female
  Weight: 77 kg

DRUGS (30)
  1. HUMAN IMMUNOGLOBULIN G [Suspect]
     Active Substance: HUMAN IMMUNOGLOBULIN G
     Indication: Myasthenia gravis
     Dosage: 80 GRAM, Q4WEEKS
     Route: 042
     Dates: start: 20210218
  2. HUMAN IMMUNOGLOBULIN G [Suspect]
     Active Substance: HUMAN IMMUNOGLOBULIN G
     Dosage: 80 GRAM, Q6WEEKS
     Route: 042
     Dates: start: 20210218
  3. ACETAMINOPHEN [Concomitant]
     Active Substance: ACETAMINOPHEN
  4. DIPHENHYDRAMINE [Concomitant]
     Active Substance: DIPHENHYDRAMINE
  5. HEPARIN [Concomitant]
     Active Substance: HEPARIN SODIUM
  6. LIDOCAINE [Concomitant]
     Active Substance: LIDOCAINE
  7. SODIUM CHLORIDE [Concomitant]
     Active Substance: SODIUM CHLORIDE
  8. EPINEPHRINE [Concomitant]
     Active Substance: EPINEPHRINE
  9. SINGULAIR [Concomitant]
     Active Substance: MONTELUKAST SODIUM
  10. PREDNISONE [Concomitant]
     Active Substance: PREDNISONE
  11. VITAMIN D3 [Concomitant]
     Active Substance: CHOLECALCIFEROL
  12. ESOMEPRAZOLE [Concomitant]
     Active Substance: ESOMEPRAZOLE
  13. MAGNESIUM [Concomitant]
     Active Substance: MAGNESIUM
  14. ALIGN [Concomitant]
     Active Substance: BIFIDOBACTERIUM LONGUM SUBSP. INFANTIS
  15. CALCIUM\ERGOCALCIFEROL [Concomitant]
     Active Substance: CALCIUM\ERGOCALCIFEROL
  16. PROLIA [Concomitant]
     Active Substance: DENOSUMAB
  17. VYTORIN [Concomitant]
     Active Substance: EZETIMIBE\SIMVASTATIN
  18. CALCIUM [Concomitant]
     Active Substance: CALCIUM
  19. AZATHIOPRINE [Concomitant]
     Active Substance: AZATHIOPRINE
  20. NEXLETOL [Concomitant]
     Active Substance: BEMPEDOIC ACID
  21. ZOSTAVAX [Concomitant]
     Active Substance: VARICELLA-ZOSTER VIRUS STRAIN OKA/MERCK LIVE ANTIGEN
  22. VITAMIN C [Concomitant]
     Active Substance: ASCORBIC ACID
  23. PFIZER-BIONTECH COVID-19 VACCINE [Concomitant]
     Active Substance: TOZINAMERAN
  24. MELATONIN [Concomitant]
     Active Substance: MELATONIN
  25. ADACEL TDAP [Concomitant]
     Active Substance: TETANUS TOXOID, REDUCED DIPHTHERIA TOXOID AND ACELLULAR PERTUSSIS VACCINE ADSORBED, TDAP
  26. EZETIMIBE [Concomitant]
     Active Substance: EZETIMIBE
  27. ESTRADIOL [Concomitant]
     Active Substance: ESTRADIOL
  28. PNEUMOVAX 23 [Concomitant]
     Active Substance: PNEUMOCOCCAL VACCINE, POLYVALENT 23
  29. METOPROLOL SUCCINATE [Concomitant]
     Active Substance: METOPROLOL SUCCINATE
     Dosage: UNK
  30. ZALEPLON [Concomitant]
     Active Substance: ZALEPLON
     Dosage: UNK

REACTIONS (13)
  - Deafness unilateral [Unknown]
  - Retinal tear [Unknown]
  - Vein disorder [Unknown]
  - Dysphonia [Unknown]
  - Seasonal allergy [Unknown]
  - Infusion related reaction [Unknown]
  - Administration site bruise [Unknown]
  - Administration site swelling [Unknown]
  - Somnolence [Unknown]
  - Muscular weakness [Unknown]
  - Back pain [Unknown]
  - Fatigue [Unknown]
  - Off label use [Unknown]

NARRATIVE: CASE EVENT DATE: 20210218
